FAERS Safety Report 13941998 (Version 1)
Quarter: 2017Q3

REPORT INFORMATION
  Report Type: Spontaneous
  Country: FR (occurrence: FR)
  Receive Date: 20170906
  Receipt Date: 20170906
  Transmission Date: 20171127
  Serious: Yes (Hospitalization)
  Sender: FDA-Public Use
  Company Number: FR-SA-2017SA159193

PATIENT
  Age: 83 Year
  Sex: Male

DRUGS (6)
  1. DIGOXINE [Concomitant]
     Active Substance: DIGOXIN
     Dosage: 0.25 MG, 1/2 DAILY
     Route: 065
  2. COAPROVEL [Suspect]
     Active Substance: HYDROCHLOROTHIAZIDE\IRBESARTAN
     Dosage: 1 DF, 1 IN 1 DAY IN MORNING
     Route: 048
     Dates: end: 201702
  3. PREVISCAN [Concomitant]
     Active Substance: FLUINDIONE
     Dosage: DOSE, FREQUENCY, DAILY DOSE: 1/4 TABLET ON DAY 1, 1/4 TABLET ON DAY 2, 1/2 TABLET ON DAY 3
     Route: 065
  4. PERMIXON [Concomitant]
     Active Substance: HERBALS\SAW PALMETTO
     Dosage: 160 MG, 2 TABLETS PER DAY
     Route: 065
  5. METFORMIN [Concomitant]
     Active Substance: METFORMIN HYDROCHLORIDE
     Dosage: 500 MG, 1 IN THE MORNING AND 1 IN THE EVENING
     Route: 065
  6. LASILIX [Suspect]
     Active Substance: FUROSEMIDE
     Dosage: 40 MG, 1 IN 1 DAY IN THE MORNING
     Route: 048
     Dates: end: 201702

REACTIONS (2)
  - Dehydration [Recovered/Resolved]
  - Acute kidney injury [Recovered/Resolved]

NARRATIVE: CASE EVENT DATE: 20170213
